FAERS Safety Report 26214165 (Version 1)
Quarter: 2025Q4

REPORT INFORMATION
  Report Type: Spontaneous
  Country: CN (occurrence: CN)
  Receive Date: 20251230
  Receipt Date: 20251230
  Transmission Date: 20260118
  Serious: Yes (Other)
  Sender: BAYER HEALTHCARE PHARMACEUTICALS INC.
  Company Number: CN-BAYER-2025A170222

PATIENT
  Age: 81 Year
  Sex: Male
  Weight: 65 kg

DRUGS (1)
  1. AVELOX [Suspect]
     Active Substance: MOXIFLOXACIN HYDROCHLORIDE
     Indication: Pneumonia
     Dosage: 0.4 G, QD
     Route: 041
     Dates: start: 20251215, end: 20251219

REACTIONS (2)
  - Altered state of consciousness [Recovered/Resolved]
  - Dysphoria [Recovered/Resolved]

NARRATIVE: CASE EVENT DATE: 20251219
